FAERS Safety Report 17448749 (Version 1)
Quarter: 2020Q1

REPORT INFORMATION
  Report Type: Report from Study
  Country: NL (occurrence: NL)
  Receive Date: 20200224
  Receipt Date: 20200224
  Transmission Date: 20200409
  Serious: Yes (Other)
  Sender: FDA-Public Use
  Company Number: NL-TEVA-2020-NL-1190796

PATIENT
  Age: 27 Year
  Sex: Male

DRUGS (5)
  1. MESALAZINE ZETPIL [Concomitant]
     Dosage: 500 MILLIGRAM DAILY; 500MG, 1X/D
     Dates: start: 20170327
  2. INFLIXIMAB - REMSIMA [Concomitant]
     Dosage: 5MG/KG, 1X/8W
     Dates: start: 20150526, end: 20180423
  3. FERROFUMARAAT TABLET 200MG [Concomitant]
     Active Substance: FERROUS FUMARATE
     Dosage: 200MG
     Dates: start: 20170124, end: 20170424
  4. MESALAZINE ORAAL [Suspect]
     Active Substance: MESALAMINE
     Indication: COLITIS ULCERATIVE
     Dosage: 1G, 2X/D
     Route: 048
     Dates: start: 20161018, end: 20170327
  5. AZATHIOPRINE. [Concomitant]
     Active Substance: AZATHIOPRINE
     Dosage: 150 MILLIGRAM DAILY; 150MG, 1X/D
     Dates: start: 20140731, end: 20180917

REACTIONS (1)
  - Haemorrhage [Recovered/Resolved]

NARRATIVE: CASE EVENT DATE: 20170327
